FAERS Safety Report 4835543-X (Version None)
Quarter: 2005Q4

REPORT INFORMATION
  Report Type: 
  Country: None (occurrence: None)
  Receive Date: 20051121
  Receipt Date: 20051109
  Transmission Date: 20060501
  Serious: Yes (Other)
  Sender: FDA-Public Use
  Company Number: 2005154578

PATIENT
  Age: 49 Year
  Sex: Male
  Weight: 99.7913 kg

DRUGS (8)
  1. GABAPENTIN [Suspect]
     Indication: ARTHRITIS
     Dosage: 300 MG (300 MG, 1 IN 1D)
     Dates: start: 20050101, end: 20051001
  2. TYLOX (OXYCODONE HYDROCHLORIDE PARACETAMOL) [Concomitant]
  3. LORAZEPAM [Concomitant]
  4. CELEXA [Concomitant]
  5. XANAX [Concomitant]
  6. ATIVAN [Concomitant]
  7. SEROQUEL (QUETIAZPINE FUMARATE) [Concomitant]
  8. MUSCLE RELAXANTS (MUSCLE RELAXANTS) [Concomitant]

REACTIONS (32)
  - ABDOMINAL TENDERNESS [None]
  - AMNESIA [None]
  - APHONIA [None]
  - BACK PAIN [None]
  - BUNION [None]
  - CONVULSION [None]
  - DIABETES MELLITUS NON-INSULIN-DEPENDENT [None]
  - DIARRHOEA [None]
  - DISTURBANCE IN ATTENTION [None]
  - EATING DISORDER [None]
  - ECONOMIC PROBLEM [None]
  - EXERCISE LACK OF [None]
  - FEELING ABNORMAL [None]
  - GAIT DISTURBANCE [None]
  - GANGRENE [None]
  - GASTRIC PH DECREASED [None]
  - GESTATIONAL DIABETES [None]
  - HYPOAESTHESIA [None]
  - INCOHERENT [None]
  - INSOMNIA [None]
  - JOINT STIFFNESS [None]
  - MALAISE [None]
  - MALNUTRITION [None]
  - MUSCLE SPASMS [None]
  - NAUSEA [None]
  - POISONING [None]
  - RETCHING [None]
  - ROAD TRAFFIC ACCIDENT [None]
  - SOMNOLENCE [None]
  - SPEECH DISORDER [None]
  - TOE DEFORMITY [None]
  - VOMITING [None]
